FAERS Safety Report 5092968-8 (Version None)
Quarter: 2006Q3

REPORT INFORMATION
  Report Type: 
  Country: None (occurrence: None)
  Receive Date: 20060830
  Receipt Date: 20050617
  Transmission Date: 20061208
  Serious: Yes (Other)
  Sender: FDA-Public Use
  Company Number: US-GLAXOSMITHKLINE-A0563178A

PATIENT
  Age: 66 Year
  Sex: Male

DRUGS (4)
  1. SEREVENT [Suspect]
     Indication: BRONCHIECTASIS
     Dosage: 50MCG TWICE PER DAY
     Route: 055
  2. ADVAIR DISKUS 100/50 [Suspect]
     Indication: BRONCHIECTASIS
     Route: 055
  3. ACCOLATE [Concomitant]
  4. ALBUTEROL [Concomitant]

REACTIONS (3)
  - LUNG INFECTION [None]
  - PNEUMONITIS [None]
  - RESPIRATORY TRACT IRRITATION [None]
